FAERS Safety Report 7350072-X (Version None)
Quarter: 2011Q1

REPORT INFORMATION
  Report Type: 
  Country: None (occurrence: None)
  Receive Date: 20110314
  Receipt Date: 20110303
  Transmission Date: 20110831
  Serious: Yes (Disabling)
  Sender: FDA-Public Use
  Company Number: DK-ELI_LILLY_AND_COMPANY-DK201103000968

PATIENT
  Age: 45 Year
  Sex: Female

DRUGS (1)
  1. FONTEX [Suspect]
     Indication: DEPRESSION
     Dosage: 60 MG, DAILY (1/D)
     Route: 048
     Dates: start: 20080101, end: 20101207

REACTIONS (2)
  - MUSCULOSKELETAL STIFFNESS [None]
  - TREMOR [None]
